FAERS Safety Report 8085890-6 (Version None)
Quarter: 2012Q1

REPORT INFORMATION
  Report Type: 
  Country: None (occurrence: None)
  Receive Date: 20120128
  Receipt Date: 20110429
  Transmission Date: 20120608
  Serious: No
  Sender: FDA-Public Use
  Company Number: US-ABBOTT-11P-163-0722831-00

PATIENT
  Sex: Male
  Weight: 118.04 kg

DRUGS (1)
  1. HUMIRA [Suspect]
     Indication: CROHN'S DISEASE
     Dates: start: 20080101

REACTIONS (7)
  - ABDOMINAL DISTENSION [None]
  - CROHN'S DISEASE [None]
  - NAUSEA [None]
  - ABDOMINAL DISCOMFORT [None]
  - DRUG ADMINISTRATION ERROR [None]
  - DRUG INEFFECTIVE [None]
  - DIARRHOEA [None]
